FAERS Safety Report 23358614 (Version 3)
Quarter: 2024Q1

REPORT INFORMATION
  Report Type: Spontaneous
  Country: US (occurrence: US)
  Receive Date: 20240102
  Receipt Date: 20240209
  Transmission Date: 20240410
  Serious: Yes (Death, Hospitalization, Other)
  Sender: FDA-Public Use
  Company Number: US-GILEAD-2023-0656867

PATIENT
  Age: 69 Year
  Sex: Male
  Weight: 75 kg

DRUGS (11)
  1. YESCARTA [Suspect]
     Active Substance: AXICABTAGENE CILOLEUCEL
     Indication: Diffuse large B-cell lymphoma
     Dosage: 68 ML
     Route: 042
     Dates: start: 20231113, end: 20231113
  2. AVIPENDEKIN PEGOL [Suspect]
     Active Substance: AVIPENDEKIN PEGOL
     Indication: Diffuse large B-cell lymphoma
     Dosage: UNK, AS PART OF A CLINICAL TRIAL (NEKTAR TRIAL) (POST YESCARTA INFUSION)
     Route: 065
     Dates: start: 20231204
  3. KEPPRA [Concomitant]
     Active Substance: LEVETIRACETAM
     Dosage: 750 MG, BID
  4. DICLOFENAC [Concomitant]
     Active Substance: DICLOFENAC
     Dosage: 2 G, QID (1% GEL)
     Route: 061
  5. TESSALON [Concomitant]
     Active Substance: BENZONATATE
     Dosage: 100 MG, PRN
  6. FONDAPARINUX [Concomitant]
     Active Substance: FONDAPARINUX
     Dosage: 7.5 MG/0.6 ML INJECTION, INJECT 0.6 ML INTO SKIN DAILY
  7. PRILOSEC [Concomitant]
     Active Substance: OMEPRAZOLE MAGNESIUM
     Dosage: 40 MG, QD
  8. TOPROL XL [Concomitant]
     Active Substance: METOPROLOL SUCCINATE
     Dosage: XL, 25 MG, QD
  9. BACTRIM [Concomitant]
     Active Substance: SULFAMETHOXAZOLE\TRIMETHOPRIM
     Dosage: 400-80 MG PER TABLET, QD
  10. ZOVIRAX [Concomitant]
     Active Substance: ACYCLOVIR
     Dosage: 800 MG, BID
  11. ASPIRIN [Concomitant]
     Active Substance: ASPIRIN

REACTIONS (7)
  - Acute motor axonal neuropathy [Fatal]
  - Status epilepticus [Fatal]
  - Seizure [Fatal]
  - Death [Fatal]
  - Cytokine release syndrome [Recovered/Resolved]
  - Immune effector cell-associated neurotoxicity syndrome [Recovered/Resolved]
  - Neurotoxicity [Unknown]

NARRATIVE: CASE EVENT DATE: 20231221
